FAERS Safety Report 24873243 (Version 6)
Quarter: 2025Q2

REPORT INFORMATION
  Report Type: Spontaneous
  Country: US (occurrence: US)
  Receive Date: 20250122
  Receipt Date: 20250512
  Transmission Date: 20250717
  Serious: Yes (Hospitalization, Other)
  Sender: CSL BEHRING
  Company Number: US-BEH-2025192474

PATIENT
  Age: 33 Year
  Sex: Female
  Weight: 113.5 kg

DRUGS (11)
  1. MIRCERA [Suspect]
     Active Substance: METHOXY POLYETHYLENE GLYCOL-EPOETIN BETA
     Indication: Nephrogenic anaemia
     Route: 065
     Dates: start: 20241224
  2. MIRCERA [Suspect]
     Active Substance: METHOXY POLYETHYLENE GLYCOL-EPOETIN BETA
     Dosage: 60 ?G, QOW
     Route: 040
     Dates: start: 20250108
  3. VENOFER [Concomitant]
     Active Substance: IRON SUCROSE
     Indication: Anaemia
     Dates: start: 20241213
  4. VENOFER [Concomitant]
     Active Substance: IRON SUCROSE
     Route: 040
     Dates: start: 20250108
  5. CALCIJEX [Concomitant]
     Active Substance: CALCITRIOL
     Dates: start: 20250106
  6. VITAMIN D [Concomitant]
     Active Substance: VITAMIN D NOS
     Indication: Hyperparathyroidism secondary
     Dosage: 0.5 ?G, TIW
     Route: 048
     Dates: start: 20250106
  7. DELTASONE [Concomitant]
     Active Substance: PREDNISONE
     Dosage: 50 MG, QD BYMOUTH IN MORNING FOR 5 DAYS
     Dates: start: 20250108, end: 20250113
  8. DECADRON [Concomitant]
     Active Substance: DEXAMETHASONE
     Route: 042
     Dates: start: 20250108
  9. PEPCID [Concomitant]
     Active Substance: FAMOTIDINE
     Route: 042
     Dates: start: 20250108
  10. CIPROFLOXACIN [Concomitant]
     Active Substance: CIPROFLOXACIN
  11. AMOXICILLIN [Suspect]
     Active Substance: AMOXICILLIN

REACTIONS (2)
  - Drug hypersensitivity [Recovered/Resolved]
  - Dyspnoea [Recovered/Resolved]

NARRATIVE: CASE EVENT DATE: 20250108
